FAERS Safety Report 20426157 (Version 1)
Quarter: 2022Q1

REPORT INFORMATION
  Report Type: Spontaneous
  Country: GB (occurrence: GB)
  Receive Date: 20220204
  Receipt Date: 20220204
  Transmission Date: 20220424
  Serious: No
  Sender: FDA-Public Use
  Company Number: GB-EXELIXIS-CABO-21041433

PATIENT
  Sex: Male

DRUGS (1)
  1. CABOMETYX [Suspect]
     Active Substance: CABOZANTINIB S-MALATE
     Indication: Renal cell carcinoma
     Dosage: 40 MG, QD

REACTIONS (3)
  - Cholelithiasis [Unknown]
  - Eosinophil count increased [Unknown]
  - Malignant neoplasm progression [Unknown]
